FAERS Safety Report 7004813-1 (Version None)
Quarter: 2010Q3

REPORT INFORMATION
  Report Type: 
  Country: None (occurrence: None)
  Receive Date: 20100921
  Receipt Date: 20100916
  Transmission Date: 20110219
  Serious: Yes (Hospitalization, Other)
  Sender: FDA-Public Use
  Company Number: DE-SANOFI-AVENTIS-2010SA048052

PATIENT
  Age: 62 Year
  Sex: Female

DRUGS (2)
  1. DOCETAXEL [Suspect]
     Indication: BREAST CANCER
     Route: 041
     Dates: start: 20100720, end: 20100720
  2. LAMOTRIGINE [Suspect]
     Indication: EPILEPSY
     Dosage: 200-150-200
     Route: 048

REACTIONS (2)
  - ATAXIA [None]
  - POLYNEUROPATHY [None]
